FAERS Safety Report 6928570-X (Version None)
Quarter: 2010Q3

REPORT INFORMATION
  Report Type: 
  Country: None (occurrence: None)
  Receive Date: 20100817
  Receipt Date: 20100806
  Transmission Date: 20110219
  Serious: Yes (Death)
  Sender: FDA-Public Use
  Company Number: JP-JNJFOC-20100502658

PATIENT
  Sex: Female

DRUGS (5)
  1. DOXIL [Suspect]
     Indication: OVARIAN CANCER RECURRENT
     Dosage: CYCLE 2
     Route: 042
  2. DOXIL [Suspect]
     Dosage: CYCLE 1
     Route: 042
  3. MOHRUS TAPE [Concomitant]
     Indication: PRODUCT USED FOR UNKNOWN INDICATION
     Route: 062
  4. CEFAMEZIN ALPHA [Concomitant]
     Route: 042
  5. OMEPRAL [Concomitant]
     Route: 042

REACTIONS (2)
  - MULTI-ORGAN FAILURE [None]
  - SEPSIS [None]
